FAERS Safety Report 6568529-8 (Version None)
Quarter: 2010Q1

REPORT INFORMATION
  Report Type: 
  Country: None (occurrence: None)
  Receive Date: 20100129
  Receipt Date: 20100115
  Transmission Date: 20100710
  Serious: Yes (Death)
  Sender: FDA-Public Use
  Company Number: ALA_00407_2010

PATIENT
  Age: 38 Year
  Sex: Female

DRUGS (9)
  1. METOCLOPRAMIDE [Suspect]
     Indication: NAUSEA
     Dosage: 10 MG ONE TIME DOSE INTRAVENOUS (NOT OTHERWISE SPECIFIED)
     Route: 042
  2. METOCLOPRAMIDE [Suspect]
     Indication: VOMITING
     Dosage: 10 MG ONE TIME DOSE INTRAVENOUS (NOT OTHERWISE SPECIFIED)
     Route: 042
  3. LABETALOL HCL [Suspect]
     Indication: BLOOD PRESSURE INCREASED
     Dosage: 10 MG ONE TIME DOSE INTRAVENOUS (NOT OTHERWISE SPECIFIED)
     Route: 042
  4. LISINOPRIL [Concomitant]
  5. MEPIVACAINE (UNKNOWN) [Concomitant]
  6. BUPIVACAINE (UNKNOWN) [Concomitant]
  7. MIDAZOLAM (UNKNOWN) [Concomitant]
  8. PROPOFOL (UNKNOWN) [Concomitant]
  9. OXYGEN (UNKNOWN) [Concomitant]

REACTIONS (17)
  - BLOOD PH DECREASED [None]
  - BLOOD PRESSURE IMMEASURABLE [None]
  - CARDIAC FAILURE [None]
  - CIRCULATORY COLLAPSE [None]
  - DILATATION VENTRICULAR [None]
  - HYPOTENSION [None]
  - LEFT ATRIAL DILATATION [None]
  - NAUSEA [None]
  - NODAL ARRHYTHMIA [None]
  - PCO2 DECREASED [None]
  - PNEUMOTHORAX [None]
  - PO2 INCREASED [None]
  - PULSE ABSENT [None]
  - QRS AXIS ABNORMAL [None]
  - SINUS TACHYCARDIA [None]
  - UNRESPONSIVE TO STIMULI [None]
  - VOMITING [None]
